FAERS Safety Report 7626908-1 (Version None)
Quarter: 2011Q3

REPORT INFORMATION
  Report Type: 
  Country: None (occurrence: None)
  Receive Date: 20110721
  Receipt Date: 20110714
  Transmission Date: 20111222
  Serious: No
  Sender: FDA-Public Use
  Company Number: US-BAYER-2011-061828

PATIENT
  Sex: Female

DRUGS (1)
  1. BETASERON [Suspect]
     Dosage: 0.3 MG, QOD
     Dates: start: 20110201, end: 20110501

REACTIONS (7)
  - INFLUENZA LIKE ILLNESS [None]
  - DEPRESSION [None]
  - PAIN [None]
  - CRYING [None]
  - DEPRESSED MOOD [None]
  - INJECTION SITE MASS [None]
  - FATIGUE [None]
